FAERS Safety Report 16966555 (Version 2)
Quarter: 2020Q1

REPORT INFORMATION
  Report Type: Report from Study
  Country: GB (occurrence: GB)
  Receive Date: 20191028
  Receipt Date: 20200204
  Transmission Date: 20200409
  Serious: Yes (Hospitalization)
  Sender: FDA-Public Use
  Company Number: GB-PFIZER INC-2019457841

PATIENT
  Age: 62 Year
  Sex: Female
  Weight: 99.8 kg

DRUGS (9)
  1. SRA737 [Suspect]
     Active Substance: INVESTIGATIONAL PRODUCT
     Dosage: 600 MG, CYCLIC (ON DAYS 2, 3, 9, 10, 16 AND 17 OF EACH 28-DAY CYCLE)
     Route: 048
     Dates: start: 20190122
  2. LODINE [Concomitant]
     Active Substance: ETODOLAC
     Dosage: UNK
     Dates: start: 2010
  3. HYDROCORTISONE. [Concomitant]
     Active Substance: HYDROCORTISONE
     Dosage: UNK
     Dates: start: 20190204
  4. SRA737 [Suspect]
     Active Substance: INVESTIGATIONAL PRODUCT
     Indication: ANAL CANCER STAGE II
     Dosage: 600 MG, SINGLE DOSE ON DAY-7
     Route: 048
     Dates: start: 20190114, end: 20190114
  5. METOCLOPRAMIDE. [Concomitant]
     Active Substance: METOCLOPRAMIDE
     Dosage: UNK
     Dates: start: 20190114
  6. LEVOTHYROXINE. [Concomitant]
     Active Substance: LEVOTHYROXINE
     Dosage: UNK
     Dates: start: 201712
  7. CETIRIZINE [Concomitant]
     Active Substance: CETIRIZINE HYDROCHLORIDE
     Dosage: UNK
     Dates: start: 20190204
  8. GEMCITABINE HYDROCHLORIDE. [Suspect]
     Active Substance: GEMCITABINE HYDROCHLORIDE
     Indication: ANAL CANCER STAGE II
     Dosage: 250 MG/M2, CYCLIC (ON DAYS 1, 8 AND 15 OF EACH 28-DAY CYCLE)
     Route: 042
     Dates: start: 20190121
  9. RANITIDINE. [Concomitant]
     Active Substance: RANITIDINE
     Dosage: UNK
     Dates: start: 20170114

REACTIONS (1)
  - Pneumonia [Not Recovered/Not Resolved]

NARRATIVE: CASE EVENT DATE: 20190313
